FAERS Safety Report 25353534 (Version 1)
Quarter: 2025Q2

REPORT INFORMATION
  Report Type: Spontaneous
  Country: JP (occurrence: JP)
  Receive Date: 20250523
  Receipt Date: 20250523
  Transmission Date: 20250716
  Serious: Yes (Hospitalization, Other)
  Sender: UCB
  Company Number: JP-UCBJ-CD202506685UCBPHAPROD

PATIENT
  Age: 2 Year

DRUGS (1)
  1. FINTEPLA [Suspect]
     Active Substance: FENFLURAMINE
     Indication: Severe myoclonic epilepsy of infancy
     Route: 048
     Dates: start: 20241227

REACTIONS (3)
  - Encephalopathy [Unknown]
  - Off label use [Unknown]
  - Prescribed underdose [Unknown]
